FAERS Safety Report 15364042 (Version 2)
Quarter: 2018Q3

REPORT INFORMATION
  Report Type: Spontaneous
  Country: US (occurrence: US)
  Receive Date: 20180908
  Receipt Date: 20180913
  Transmission Date: 20181010
  Serious: No
  Sender: FDA-Public Use
  Company Number: US-009507513-1809USA000761

PATIENT
  Age: 63 Year
  Sex: Female

DRUGS (4)
  1. SIMBRINZA [Concomitant]
     Active Substance: BRIMONIDINE TARTRATE\BRINZOLAMIDE
     Dosage: UNK
  2. BELSOMRA [Suspect]
     Active Substance: SUVOREXANT
     Dosage: 20 MG, ONCE A NIGHT
     Route: 048
     Dates: start: 20180826
  3. TRAVATAN [Concomitant]
     Active Substance: TRAVOPROST
     Dosage: UNK
  4. BELSOMRA [Suspect]
     Active Substance: SUVOREXANT
     Indication: INSOMNIA
     Dosage: 15 MG, ONCE A NIGHT
     Route: 048
     Dates: start: 20180817, end: 20180826

REACTIONS (3)
  - Vertigo [Not Recovered/Not Resolved]
  - Abnormal dreams [Recovering/Resolving]
  - Poor quality sleep [Recovering/Resolving]

NARRATIVE: CASE EVENT DATE: 201808
